FAERS Safety Report 24595533 (Version 2)
Quarter: 2024Q4

REPORT INFORMATION
  Report Type: Report from Study
  Country: US (occurrence: US)
  Receive Date: 20241109
  Receipt Date: 20241130
  Transmission Date: 20250115
  Serious: Yes (Other)
  Sender: ABBVIE
  Company Number: US-ABBVIE-5991274

PATIENT
  Age: 66 Year
  Sex: Male
  Weight: 77.11 kg

DRUGS (1)
  1. HUMIRA [Suspect]
     Active Substance: ADALIMUMAB
     Indication: Colitis ulcerative
     Dosage: START DATE- 5 OR 10 YEARS AGO
     Route: 058
     Dates: start: 2014

REACTIONS (4)
  - Aortic valve calcification [Recovering/Resolving]
  - Hernia [Not Recovered/Not Resolved]
  - Chest discomfort [Recovering/Resolving]
  - Aortic valve incompetence [Recovering/Resolving]

NARRATIVE: CASE EVENT DATE: 20240101
